FAERS Safety Report 8909784 (Version 1)
Quarter: 2012Q4

REPORT INFORMATION
  Report Type: Spontaneous
  Country: US (occurrence: None)
  Receive Date: 20121109
  Receipt Date: 20121109
  Transmission Date: 20130627
  Serious: Yes (Hospitalization)
  Sender: FDA-Public Use
  Company Number: 141173

PATIENT
  Age: 87 Year

DRUGS (5)
  1. ADRIAMYCIN [Suspect]
     Indication: LYMPHOPLASMACYTIC TYPE LYMPHOMA (KIEL CLASSIFICATION)
  2. DIGOXIN [Concomitant]
  3. LOVENOX [Concomitant]
  4. CARDIZEM [Concomitant]
  5. LASIX [Concomitant]

REACTIONS (10)
  - Fluid overload [None]
  - Weight increased [None]
  - Fluid retention [None]
  - Oedema peripheral [None]
  - Hyperhidrosis [None]
  - Atrial fibrillation [None]
  - Cardiac failure congestive [None]
  - Condition aggravated [None]
  - Myocardial infarction [None]
  - Chest pain [None]
